FAERS Safety Report 8389951-3 (Version None)
Quarter: 2012Q2

REPORT INFORMATION
  Report Type: 
  Country: None (occurrence: None)
  Receive Date: 20120529
  Receipt Date: 20120524
  Transmission Date: 20120825
  Serious: No
  Sender: FDA-Public Use
  Company Number: US-PFIZER INC-2012126184

PATIENT
  Sex: Female
  Weight: 70 kg

DRUGS (3)
  1. PROCARDIA [Suspect]
     Indication: BLOOD PRESSURE INCREASED
     Dosage: 10 MG, 3X/DAY
     Route: 048
  2. PLAQUENIL [Concomitant]
     Indication: SYSTEMIC LUPUS ERYTHEMATOSUS
     Dosage: 10 MG, 1X/DAY
  3. PROCARDIA XL [Suspect]
     Indication: BLOOD PRESSURE INCREASED
     Dosage: 30 MG, 1X/DAY
     Route: 048
     Dates: start: 19970101

REACTIONS (3)
  - BLOOD PRESSURE INCREASED [None]
  - STRESS [None]
  - HYPOTENSION [None]
